FAERS Safety Report 21824163 (Version 2)
Quarter: 2023Q2

REPORT INFORMATION
  Report Type: Report from Study
  Country: US (occurrence: US)
  Receive Date: 20230105
  Receipt Date: 20230428
  Transmission Date: 20230722
  Serious: Yes (Hospitalization)
  Sender: FDA-Public Use
  Company Number: US-TAKEDA-2023TUS000896

PATIENT
  Age: 82 Year
  Sex: Female

DRUGS (69)
  1. TEDUGLUTIDE [Suspect]
     Active Substance: TEDUGLUTIDE
     Indication: Short-bowel syndrome
     Dosage: 2.8 MILLIGRAM, QD
     Route: 042
     Dates: start: 20160518, end: 20170601
  2. TEDUGLUTIDE [Suspect]
     Active Substance: TEDUGLUTIDE
     Indication: Short-bowel syndrome
     Dosage: 2.8 MILLIGRAM, QD
     Route: 042
     Dates: start: 20160518, end: 20170601
  3. TEDUGLUTIDE [Suspect]
     Active Substance: TEDUGLUTIDE
     Indication: Short-bowel syndrome
     Dosage: 2.8 MILLIGRAM, QD
     Route: 042
     Dates: start: 20160518, end: 20170601
  4. TEDUGLUTIDE [Suspect]
     Active Substance: TEDUGLUTIDE
     Indication: Short-bowel syndrome
     Dosage: 2.8 MILLIGRAM, QD
     Route: 042
     Dates: start: 20160518, end: 20170601
  5. TEDUGLUTIDE [Suspect]
     Active Substance: TEDUGLUTIDE
     Dosage: 5 MILLIGRAM, QD
     Route: 042
     Dates: start: 20170606, end: 20170705
  6. TEDUGLUTIDE [Suspect]
     Active Substance: TEDUGLUTIDE
     Dosage: 5 MILLIGRAM, QD
     Route: 042
     Dates: start: 20170606, end: 20170705
  7. TEDUGLUTIDE [Suspect]
     Active Substance: TEDUGLUTIDE
     Dosage: 5 MILLIGRAM, QD
     Route: 042
     Dates: start: 20170606, end: 20170705
  8. TEDUGLUTIDE [Suspect]
     Active Substance: TEDUGLUTIDE
     Dosage: 5 MILLIGRAM, QD
     Route: 042
     Dates: start: 20170606, end: 20170705
  9. TEDUGLUTIDE [Suspect]
     Active Substance: TEDUGLUTIDE
     Dosage: 5 MILLIGRAM, QD
     Route: 042
     Dates: start: 20171004, end: 20180117
  10. TEDUGLUTIDE [Suspect]
     Active Substance: TEDUGLUTIDE
     Dosage: 5 MILLIGRAM, QD
     Route: 042
     Dates: start: 20171004, end: 20180117
  11. TEDUGLUTIDE [Suspect]
     Active Substance: TEDUGLUTIDE
     Dosage: 5 MILLIGRAM, QD
     Route: 042
     Dates: start: 20171004, end: 20180117
  12. TEDUGLUTIDE [Suspect]
     Active Substance: TEDUGLUTIDE
     Dosage: 5 MILLIGRAM, QD
     Route: 042
     Dates: start: 20171004, end: 20180117
  13. TEDUGLUTIDE [Suspect]
     Active Substance: TEDUGLUTIDE
     Dosage: 2.8 MILLIGRAM, QD
     Route: 042
     Dates: start: 20180117, end: 20180514
  14. TEDUGLUTIDE [Suspect]
     Active Substance: TEDUGLUTIDE
     Dosage: 2.8 MILLIGRAM, QD
     Route: 042
     Dates: start: 20180117, end: 20180514
  15. TEDUGLUTIDE [Suspect]
     Active Substance: TEDUGLUTIDE
     Dosage: 2.8 MILLIGRAM, QD
     Route: 042
     Dates: start: 20180117, end: 20180514
  16. TEDUGLUTIDE [Suspect]
     Active Substance: TEDUGLUTIDE
     Dosage: 2.8 MILLIGRAM, QD
     Route: 042
     Dates: start: 20180117, end: 20180514
  17. TEDUGLUTIDE [Suspect]
     Active Substance: TEDUGLUTIDE
     Dosage: 5 MILLIGRAM, QD
     Route: 042
     Dates: start: 20180514, end: 20180718
  18. TEDUGLUTIDE [Suspect]
     Active Substance: TEDUGLUTIDE
     Dosage: 5 MILLIGRAM, QD
     Route: 042
     Dates: start: 20180514, end: 20180718
  19. TEDUGLUTIDE [Suspect]
     Active Substance: TEDUGLUTIDE
     Dosage: 5 MILLIGRAM, QD
     Route: 042
     Dates: start: 20180514, end: 20180718
  20. TEDUGLUTIDE [Suspect]
     Active Substance: TEDUGLUTIDE
     Dosage: 5 MILLIGRAM, QD
     Route: 042
     Dates: start: 20180514, end: 20180718
  21. TEDUGLUTIDE [Suspect]
     Active Substance: TEDUGLUTIDE
     Dosage: 1.25 MILLIGRAM, QD
     Route: 042
     Dates: start: 20180718, end: 20180730
  22. TEDUGLUTIDE [Suspect]
     Active Substance: TEDUGLUTIDE
     Dosage: 1.25 MILLIGRAM, QD
     Route: 042
     Dates: start: 20180718, end: 20180730
  23. TEDUGLUTIDE [Suspect]
     Active Substance: TEDUGLUTIDE
     Dosage: 1.25 MILLIGRAM, QD
     Route: 042
     Dates: start: 20180718, end: 20180730
  24. TEDUGLUTIDE [Suspect]
     Active Substance: TEDUGLUTIDE
     Dosage: 1.25 MILLIGRAM, QD
     Route: 042
     Dates: start: 20180718, end: 20180730
  25. TEDUGLUTIDE [Suspect]
     Active Substance: TEDUGLUTIDE
     Dosage: 2.8 MILLIGRAM, QD
     Route: 042
     Dates: start: 20180730, end: 20200311
  26. TEDUGLUTIDE [Suspect]
     Active Substance: TEDUGLUTIDE
     Dosage: 2.8 MILLIGRAM, QD
     Route: 042
     Dates: start: 20180730, end: 20200311
  27. TEDUGLUTIDE [Suspect]
     Active Substance: TEDUGLUTIDE
     Dosage: 2.8 MILLIGRAM, QD
     Route: 042
     Dates: start: 20180730, end: 20200311
  28. TEDUGLUTIDE [Suspect]
     Active Substance: TEDUGLUTIDE
     Dosage: 2.8 MILLIGRAM, QD
     Route: 042
     Dates: start: 20180730, end: 20200311
  29. TEDUGLUTIDE [Suspect]
     Active Substance: TEDUGLUTIDE
     Dosage: 1 MILLIGRAM, QD
     Route: 042
     Dates: start: 20200311
  30. TEDUGLUTIDE [Suspect]
     Active Substance: TEDUGLUTIDE
     Dosage: 1 MILLIGRAM, QD
     Route: 042
     Dates: start: 20200311
  31. TEDUGLUTIDE [Suspect]
     Active Substance: TEDUGLUTIDE
     Dosage: 1 MILLIGRAM, QD
     Route: 042
     Dates: start: 20200311
  32. TEDUGLUTIDE [Suspect]
     Active Substance: TEDUGLUTIDE
     Dosage: 1 MILLIGRAM, QD
     Route: 042
     Dates: start: 20200311
  33. NORVASC [Concomitant]
     Active Substance: AMLODIPINE BESYLATE
     Indication: Essential hypertension
     Dosage: 5.00 MILLIGRAM, QD
     Route: 048
     Dates: start: 20180405, end: 20181101
  34. NORVASC [Concomitant]
     Active Substance: AMLODIPINE BESYLATE
     Indication: Chronic kidney disease
  35. VITAMIN D [Concomitant]
     Active Substance: VITAMIN D NOS
     Indication: Hypovitaminosis
     Dosage: UNK UNK, BID
     Route: 048
  36. CATAPRES [Concomitant]
     Active Substance: CLONIDINE HYDROCHLORIDE
     Indication: Essential hypertension
     Dosage: 0.20 MILLIGRAM, 1/WEEK
     Route: 048
     Dates: start: 20180405
  37. CATAPRES [Concomitant]
     Active Substance: CLONIDINE HYDROCHLORIDE
     Indication: Chronic kidney disease
  38. VITAMIN B12 [Concomitant]
     Active Substance: CYANOCOBALAMIN
     Indication: Hypovitaminosis
     Dosage: 15 MILLILITER, QD
     Route: 048
     Dates: start: 20170619
  39. FERROUS SULFATE [Concomitant]
     Active Substance: FERROUS SULFATE
     Indication: Anaemia
     Dosage: 325.00 MILLIGRAM
     Route: 048
     Dates: start: 20170819
  40. FERROUS SULFATE [Concomitant]
     Active Substance: FERROUS SULFATE
     Dosage: 325.00 MILLIGRAM
     Route: 048
     Dates: start: 20150121
  41. FOLVITE [Concomitant]
     Active Substance: FOLIC ACID
     Indication: Malnutrition
     Dosage: 400 MILLIGRAM, QD
     Route: 048
     Dates: start: 20170330
  42. IMODIUM [Concomitant]
     Active Substance: LOPERAMIDE HYDROCHLORIDE
     Indication: Short-bowel syndrome
     Dosage: 4 MILLIGRAM
     Route: 048
     Dates: start: 20170819
  43. IMODIUM [Concomitant]
     Active Substance: LOPERAMIDE HYDROCHLORIDE
     Dosage: 4 MILLIGRAM
     Route: 048
     Dates: start: 20160416
  44. LOPRESSOR [Concomitant]
     Active Substance: METOPROLOL TARTRATE
     Indication: Essential hypertension
     Dosage: 25.00 MILLIGRAM, BID
     Route: 048
     Dates: start: 20180405, end: 20180719
  45. LOPRESSOR [Concomitant]
     Active Substance: METOPROLOL TARTRATE
     Indication: Chronic kidney disease
     Dosage: 25.00 MILLIGRAM, BID
     Route: 048
     Dates: start: 20210303
  46. VIVONEX T.E.N. [Concomitant]
     Indication: Short-bowel syndrome
     Dosage: 50 MILLILITER
     Dates: start: 20180117
  47. OMEGA-3 ACIDS [Concomitant]
     Active Substance: OMEGA-3 FATTY ACIDS
     Indication: Fatty acid deficiency
     Dosage: 1 GRAM, QD
     Route: 048
     Dates: start: 20170330
  48. CREON [Concomitant]
     Active Substance: PANCRELIPASE AMYLASE\PANCRELIPASE LIPASE\PANCRELIPASE PROTEASE
     Indication: Malabsorption
     Dosage: 24000 INTERNATIONAL UNIT
     Route: 048
     Dates: start: 20160608
  49. PAXIL [Concomitant]
     Active Substance: PAROXETINE HYDROCHLORIDE
     Indication: Major depression
     Dosage: 20 MILLIGRAM
     Route: 048
     Dates: start: 20180319, end: 20180319
  50. PECTIN [Concomitant]
     Active Substance: PECTIN
     Indication: Malabsorption
     Dosage: 1 DOSAGE FORM, TID
     Route: 048
     Dates: start: 20180117
  51. PYRIDOXINE [Concomitant]
     Active Substance: PYRIDOXINE
     Indication: Hypovitaminosis
     Dosage: 50.00 MILLIGRAM, TID
     Route: 048
     Dates: start: 20180702
  52. PYRIDOXINE [Concomitant]
     Active Substance: PYRIDOXINE
     Indication: Short-bowel syndrome
     Dosage: 50.00 MILLIGRAM, TID
     Route: 048
     Dates: start: 20141203
  53. SELENIUM [Concomitant]
     Active Substance: SELENIUM
     Indication: Mineral deficiency
     Dosage: 200 MICROGRAM, QD
     Route: 048
     Dates: start: 20130925
  54. RESTORIL [Concomitant]
     Active Substance: TEMAZEPAM
     Indication: Insomnia
     Dosage: 15.00 MILLIGRAM
     Route: 048
     Dates: start: 20171214, end: 20180509
  55. COUMADIN [Concomitant]
     Active Substance: WARFARIN SODIUM
     Indication: Syncope
     Dosage: 2 MILLIGRAM
     Route: 048
     Dates: start: 20170928, end: 20180709
  56. COUMADIN [Concomitant]
     Active Substance: WARFARIN SODIUM
     Indication: Thrombosis
     Dosage: 2 MILLIGRAM, QOD
     Route: 048
     Dates: start: 20180716, end: 20181114
  57. COUMADIN [Concomitant]
     Active Substance: WARFARIN SODIUM
     Dosage: 1 MILLIGRAM, QOD
     Route: 048
     Dates: start: 20180710, end: 20180716
  58. COUMADIN [Concomitant]
     Active Substance: WARFARIN SODIUM
     Dosage: 4 MILLIGRAM, QD
     Route: 048
     Dates: start: 20181113, end: 20181113
  59. COUMADIN [Concomitant]
     Active Substance: WARFARIN SODIUM
     Dosage: 4 MILLIGRAM, QD
     Route: 048
     Dates: start: 20180719, end: 20180719
  60. ZINCATE [Concomitant]
     Indication: Mineral deficiency
     Dosage: 220 MILLIGRAM, QD
     Route: 048
     Dates: start: 20130925
  61. LOPERAMIDE [Concomitant]
     Active Substance: LOPERAMIDE
     Indication: Short-bowel syndrome
     Dosage: 2 MILLIGRAM
     Route: 048
     Dates: start: 20180702
  62. PYRIDOXINE HYDROCHLORIDE [Concomitant]
     Active Substance: PYRIDOXINE HYDROCHLORIDE
     Indication: Hypovitaminosis
     Dosage: 50 MILLIGRAM, TID
     Route: 048
     Dates: start: 20170819
  63. THIAMINE HYDROCHLORIDE [Concomitant]
     Active Substance: THIAMINE HYDROCHLORIDE
     Indication: Hypovitaminosis
     Dosage: 50.00 MILLIGRAM, QD
     Route: 048
     Dates: start: 20141203, end: 20170819
  64. CLONAZEPAM [Concomitant]
     Active Substance: CLONAZEPAM
     Indication: Insomnia
     Dosage: 1 MILLIGRAM, QD
     Route: 048
     Dates: start: 20201209
  65. CLONAZEPAM [Concomitant]
     Active Substance: CLONAZEPAM
     Indication: Generalised anxiety disorder
  66. SODIUM BICARBONATE [Concomitant]
     Active Substance: SODIUM BICARBONATE
     Indication: Malabsorption
     Dosage: 325 MILLIGRAM, BID
     Route: 048
     Dates: start: 20201202
  67. MIRTAZAPINE [Concomitant]
     Active Substance: MIRTAZAPINE
     Indication: Generalised anxiety disorder
     Dosage: 7.5 MILLIGRAM, QD
     Route: 048
     Dates: start: 20201209
  68. VOLTAREN [Concomitant]
     Active Substance: DICLOFENAC SODIUM
     Indication: Back pain
     Dosage: 2 GRAM, QID
     Route: 061
     Dates: start: 20201202
  69. LOVENOX [Concomitant]
     Active Substance: ENOXAPARIN SODIUM
     Indication: Prophylaxis
     Dosage: 80 MILLIGRAM, QD
     Route: 058
     Dates: start: 20181108, end: 20181112

REACTIONS (1)
  - Hypovolaemia [Recovered/Resolved]

NARRATIVE: CASE EVENT DATE: 20230103
